FAERS Safety Report 23239793 (Version 1)
Quarter: 2023Q4

REPORT INFORMATION
  Report Type: Report from Study
  Country: CA (occurrence: CA)
  Receive Date: 20231129
  Receipt Date: 20231129
  Transmission Date: 20240110
  Serious: Yes (Other)
  Sender: FDA-Public Use
  Company Number: CA-002147023-NVSC2020CA170697

PATIENT
  Age: 67 Year
  Sex: Male

DRUGS (24)
  1. SANDOSTATIN LAR DEPOT [Suspect]
     Active Substance: OCTREOTIDE ACETATE
     Indication: Carcinoid tumour
     Dosage: 40 MG, Q2W
     Route: 030
     Dates: start: 20170426
  2. SANDOSTATIN LAR DEPOT [Suspect]
     Active Substance: OCTREOTIDE ACETATE
     Dosage: 30 MG, Q2W (EVERY 2 WEEKS)
     Route: 030
     Dates: start: 20170426
  3. SANDOSTATIN LAR DEPOT [Suspect]
     Active Substance: OCTREOTIDE ACETATE
     Dosage: 40 MG, Q2W (EVERY 2 WEEKS)
     Route: 030
     Dates: start: 20221019
  4. AFINITOR [Suspect]
     Active Substance: EVEROLIMUS
     Indication: Pancreatic neuroendocrine tumour
     Dosage: 5 MG QD (21 UNK 2019)
     Route: 048
     Dates: start: 2019
  5. AFINITOR [Suspect]
     Active Substance: EVEROLIMUS
     Dosage: UNK
     Route: 065
     Dates: start: 20200718
  6. AFINITOR [Suspect]
     Active Substance: EVEROLIMUS
     Dosage: 10 MG, QD
     Route: 048
     Dates: start: 20200318
  7. AFINITOR [Suspect]
     Active Substance: EVEROLIMUS
     Dosage: 5 MG, QD
     Route: 048
  8. OCTREOTIDE [Concomitant]
     Active Substance: OCTREOTIDE
     Indication: Carcinoid tumour
     Dosage: 100 UG, BID (FOR 1 MONTH (23 UNK 2017))
     Route: 058
     Dates: start: 2017, end: 20170505
  9. OCTREOTIDE [Concomitant]
     Active Substance: OCTREOTIDE
     Dosage: 500 UG (2 DOSES) OMEGA)
     Route: 058
     Dates: start: 20220322
  10. OCTREOTIDE [Concomitant]
     Active Substance: OCTREOTIDE
     Dosage: UNK
     Route: 058
     Dates: start: 20220322
  11. OCTREOTIDE [Concomitant]
     Active Substance: OCTREOTIDE
     Dosage: 500 UG (01 DOSE)
     Route: 058
     Dates: start: 20220323
  12. MORPHINE [Concomitant]
     Active Substance: MORPHINE
     Indication: Pain
     Dosage: UNK
     Route: 050
     Dates: end: 2018
  13. HYDROMORPHONE [Concomitant]
     Active Substance: HYDROMORPHONE
     Indication: Pain
     Dosage: 18 MG, BID (STRENGTH: 18 MG)
     Route: 048
     Dates: start: 2018
  14. HYDROMORPHONE [Concomitant]
     Active Substance: HYDROMORPHONE
     Dosage: 4 MG, Q4H (STRENGTH: 4 MG)
     Route: 048
     Dates: start: 2018
  15. DILAUDID [Concomitant]
     Active Substance: HYDROMORPHONE HYDROCHLORIDE
     Indication: Pain
     Dosage: UNK
     Route: 050
     Dates: start: 2018
  16. SEPTRA DS [Concomitant]
     Active Substance: SULFAMETHOXAZOLE\TRIMETHOPRIM
     Indication: Product used for unknown indication
     Dosage: 1 DOSAGE FORM, BID
     Route: 048
     Dates: start: 20191231
  17. VENTOLIN [Concomitant]
     Active Substance: ALBUTEROL SULFATE
     Indication: Product used for unknown indication
     Dosage: UNK
     Route: 065
  18. NILSTAT [Concomitant]
     Active Substance: NYSTATIN
     Indication: Product used for unknown indication
     Dosage: 5 ML, QID
     Route: 065
  19. NORFLOXACIN [Concomitant]
     Active Substance: NORFLOXACIN
     Indication: Product used for unknown indication
     Dosage: 400 MG, BID, FOR 10 DAYS
     Route: 065
  20. MIRABEGRON [Concomitant]
     Active Substance: MIRABEGRON
     Indication: Prostatomegaly
     Dosage: 25 MG, QHS
     Route: 065
  21. FENTANYL [Concomitant]
     Active Substance: FENTANYL\FENTANYL CITRATE
     Indication: Product used for unknown indication
     Dosage: 25 UG (CHANGE- EVERY 72 HOURS)
     Route: 065
  22. METAMUCIL [Concomitant]
     Active Substance: PLANTAGO SEED
     Indication: Product used for unknown indication
     Dosage: UNK
     Route: 065
  23. DEXAMETHASONE [Concomitant]
     Active Substance: DEXAMETHASONE
     Indication: Product used for unknown indication
     Dosage: 1 DOSAGE FORM
     Route: 048
  24. PROBIOTICS NOS [Concomitant]
     Active Substance: PROBIOTICS NOS
     Indication: Product used for unknown indication
     Dosage: UNK
     Route: 065

REACTIONS (37)
  - Hepatic neoplasm [Unknown]
  - Blood pressure systolic increased [Unknown]
  - Urinary tract infection [Recovered/Resolved]
  - Testicular pain [Recovered/Resolved]
  - Hyperhidrosis [Unknown]
  - Feeling cold [Unknown]
  - Flushing [Unknown]
  - Chills [Unknown]
  - Erythema [Unknown]
  - Irritability [Unknown]
  - Body temperature increased [Unknown]
  - Urinary tract infection [Not Recovered/Not Resolved]
  - Pyrexia [Not Recovered/Not Resolved]
  - Neoplasm [Unknown]
  - Adhesion [Unknown]
  - Stress [Unknown]
  - Arthralgia [Unknown]
  - Blood pressure increased [Unknown]
  - Vital functions abnormal [Unknown]
  - Groin pain [Recovered/Resolved]
  - Groin pain [Unknown]
  - Fatigue [Unknown]
  - Back pain [Not Recovered/Not Resolved]
  - Abdominal pain lower [Recovered/Resolved]
  - Abdominal pain lower [Recovered/Resolved]
  - Diarrhoea [Not Recovered/Not Resolved]
  - Abdominal pain [Not Recovered/Not Resolved]
  - Gastrointestinal disorder [Unknown]
  - Abdominal discomfort [Unknown]
  - Productive cough [Unknown]
  - Night sweats [Unknown]
  - Dysphonia [Unknown]
  - Pyrexia [Unknown]
  - Pain [Unknown]
  - Needle issue [Unknown]
  - Inappropriate schedule of product administration [Unknown]
  - Incorrect dose administered [Unknown]

NARRATIVE: CASE EVENT DATE: 20200601
